FAERS Safety Report 24041429 (Version 1)
Quarter: 2024Q3

REPORT INFORMATION
  Report Type: Spontaneous
  Country: US (occurrence: US)
  Receive Date: 20240702
  Receipt Date: 20240702
  Transmission Date: 20241016
  Serious: No
  Sender: SAREPTA THERAPEUTICS
  Company Number: US-SAREPTA THERAPEUTICS INC.-SRP2023-003807

PATIENT
  Age: 11 Year
  Sex: Male
  Weight: 82.993 kg

DRUGS (4)
  1. EXONDYS 51 [Suspect]
     Active Substance: ETEPLIRSEN
     Indication: Product used for unknown indication
     Dosage: 2300 MILLIGRAM, WEEKLY
     Route: 042
     Dates: end: 20230912
  2. EXONDYS 51 [Suspect]
     Active Substance: ETEPLIRSEN
     Dosage: 2300 MILLIGRAM, WEEKLY
     Route: 042
     Dates: start: 20230922
  3. EXONDYS 51 [Suspect]
     Active Substance: ETEPLIRSEN
     Dosage: MILLIGRAM, WEEKLY, ONLY 50 PERCENT INFUSED
     Route: 042
     Dates: start: 20230926
  4. EXONDYS 51 [Suspect]
     Active Substance: ETEPLIRSEN
     Dosage: 2300 MILLIGRAM, WEEKLY
     Route: 042
     Dates: start: 20231003

REACTIONS (5)
  - Poor venous access [Unknown]
  - Device issue [Unknown]
  - Underdose [Unknown]
  - Product dose omission issue [Unknown]
  - Patient uncooperative [Unknown]

NARRATIVE: CASE EVENT DATE: 20230912
